FAERS Safety Report 24673503 (Version 2)
Quarter: 2025Q1

REPORT INFORMATION
  Report Type: Spontaneous
  Country: JP (occurrence: JP)
  Receive Date: 20241128
  Receipt Date: 20250128
  Transmission Date: 20250408
  Serious: Yes (Hospitalization, Other)
  Sender: ROCHE
  Company Number: JP-CHUGAI-2024040530

PATIENT
  Age: 54 Year
  Sex: Female
  Weight: 58 kg

DRUGS (3)
  1. MYCOPHENOLATE MOFETIL [Suspect]
     Active Substance: MYCOPHENOLATE MOFETIL
     Indication: Prophylaxis against transplant rejection
     Dosage: 1000MG/DAY
     Route: 050
  2. METHYLPREDNISOLONE [Concomitant]
     Active Substance: METHYLPREDNISOLONE
     Dosage: 2MG/DAY
     Route: 050
  3. TACROLIMUS [Concomitant]
     Active Substance: TACROLIMUS
     Dosage: 1.5MG/DAY
     Route: 050

REACTIONS (2)
  - IgA nephropathy [Unknown]
  - Ovarian theca cell tumour [Unknown]
